FAERS Safety Report 8551958-0 (Version None)
Quarter: 2012Q3

REPORT INFORMATION
  Report Type: 
  Country: None (occurrence: None)
  Receive Date: 20120730
  Receipt Date: 20120629
  Transmission Date: 20120928
  Serious: No
  Sender: FDA-Public Use
  Company Number: US-ASTRAZENECA-2012SE44457

PATIENT
  Sex: Female

DRUGS (4)
  1. TOPROL-XL [Suspect]
     Indication: ATRIAL FIBRILLATION
     Route: 048
  2. NORVASC [Suspect]
  3. TOPROL-XL [Suspect]
     Indication: MYOCARDIAL INFARCTION
     Route: 048
  4. METOPROLOL SUCCINATE [Suspect]

REACTIONS (5)
  - MALAISE [None]
  - HEART RATE INCREASED [None]
  - INTENTIONAL DRUG MISUSE [None]
  - OFF LABEL USE [None]
  - CARDIAC DISORDER [None]
